FAERS Safety Report 25281564 (Version 1)
Quarter: 2025Q2

REPORT INFORMATION
  Report Type: Spontaneous
  Country: US (occurrence: US)
  Receive Date: 20250508
  Receipt Date: 20250508
  Transmission Date: 20250716
  Serious: No
  Sender: BLUEPRINT MEDICINES
  Company Number: US-Blueprint Medicines Corporation-2025-AER-00931

PATIENT
  Age: 59 Year
  Sex: Female

DRUGS (1)
  1. AYVAKIT [Suspect]
     Active Substance: AVAPRITINIB
     Indication: Polycythaemia vera
     Route: 065
     Dates: start: 20230721

REACTIONS (6)
  - Mastocytosis [Recovered/Resolved]
  - Condition aggravated [Recovered/Resolved]
  - Tendonitis [Unknown]
  - Musculoskeletal stiffness [Unknown]
  - Tryptase increased [Recovered/Resolved]
  - COVID-19 [Recovered/Resolved]
